FAERS Safety Report 6826567-1 (Version None)
Quarter: 2010Q3

REPORT INFORMATION
  Report Type: 
  Country: None (occurrence: None)
  Receive Date: 20100709
  Receipt Date: 20100628
  Transmission Date: 20110219
  Serious: Yes (Other)
  Sender: FDA-Public Use
  Company Number: FR-GENENTECH-303710

PATIENT
  Age: 39 Year
  Sex: Female

DRUGS (6)
  1. RITUXIMAB [Suspect]
     Indication: WEGENER'S GRANULOMATOSIS
     Dosage: 375 MG/M2, UNK
     Route: 065
     Dates: start: 20081001
  2. CYCLOPHOSPHAMIDE [Concomitant]
     Indication: PRODUCT USED FOR UNKNOWN INDICATION
     Dosage: 600 MG/M2, UNK
     Route: 050
  3. CYCLOPHOSPHAMIDE [Concomitant]
     Dosage: ROUTE: ORAL
     Route: 050
  4. AZATHIOPRINE [Concomitant]
     Indication: PRODUCT USED FOR UNKNOWN INDICATION
     Dosage: UNK
     Dates: start: 20071201
  5. AZATHIOPRINE [Concomitant]
     Dosage: UNK
  6. AZATHIOPRINE [Concomitant]
     Dosage: UNK

REACTIONS (1)
  - MACULAR OEDEMA [None]
